FAERS Safety Report 9186124 (Version 1)
Quarter: 2013Q1

REPORT INFORMATION
  Report Type: Spontaneous
  Country: US (occurrence: None)
  Receive Date: 20130321
  Receipt Date: 20130321
  Transmission Date: 20140127
  Serious: Yes (Other)
  Sender: FDA-Public Use
  Company Number: 2013AM007454

PATIENT
  Age: 117 None
  Sex: Female
  Weight: 53.07 kg

DRUGS (3)
  1. SYMLINPEN 60 (PRAMLINTIDE ACETATE) PEN-INJECTOR (1.0 MG/ML) [Suspect]
     Indication: TYPE 1 DIABETES MELLITUS
     Route: 058
     Dates: start: 201301
  2. HUMALOG [Concomitant]
  3. INSULIN DETEMIR [Concomitant]

REACTIONS (5)
  - Swollen tongue [None]
  - Muscle spasms [None]
  - Muscle spasms [None]
  - Hot flush [None]
  - No therapeutic response [None]
